FAERS Safety Report 9012061 (Version 2)
Quarter: 2013Q1

REPORT INFORMATION
  Report Type: Spontaneous
  Country: US (occurrence: US)
  Receive Date: 20130114
  Receipt Date: 20130131
  Transmission Date: 20140127
  Serious: Yes (Hospitalization, Other)
  Sender: FDA-Public Use
  Company Number: US-BAYER-2013-003228

PATIENT
  Age: 25 Year
  Sex: Female
  Weight: 88.44 kg

DRUGS (9)
  1. YAZ [Suspect]
     Dosage: UNK
     Dates: start: 200604, end: 200610
  2. PREDNISONE [Concomitant]
     Dosage: 20 MG DAILY
  3. ZITHROMAX [Concomitant]
  4. NAPROXEN [Concomitant]
     Dosage: 500 MG, UNK
  5. CIMETIDINE [Concomitant]
     Dosage: 400 MG, BID
  6. ALBUTEROL [Concomitant]
     Dosage: 2 PUFFS, PRN
  7. VICODIN [Concomitant]
  8. VENTROXOL [Concomitant]
  9. PEPTO BISMOL [Concomitant]

REACTIONS (17)
  - Pulmonary embolism [Recovered/Resolved]
  - Deep vein thrombosis [None]
  - Emotional distress [None]
  - Pain [Recovered/Resolved]
  - Injury [Recovered/Resolved]
  - General physical health deterioration [Recovered/Resolved]
  - Anxiety [None]
  - Pain [None]
  - Dyspnoea [Recovered/Resolved]
  - Back pain [Recovered/Resolved]
  - Fear [None]
  - Paranoia [None]
  - Blindness transient [None]
  - Pain in extremity [None]
  - Mental disorder [None]
  - Panic attack [None]
  - Hypochondriasis [None]
